FAERS Safety Report 24716851 (Version 1)
Quarter: 2024Q4

REPORT INFORMATION
  Report Type: Spontaneous
  Country: FR (occurrence: FR)
  Receive Date: 20241210
  Receipt Date: 20241210
  Transmission Date: 20250115
  Serious: Yes (Hospitalization)
  Sender: NOVARTIS
  Company Number: None

PATIENT
  Age: 2 Year
  Sex: Female
  Weight: 12.4 kg

DRUGS (2)
  1. NEORAL [Suspect]
     Active Substance: CYCLOSPORINE
     Indication: Stem cell therapy
     Dosage: 70 MG, Q12H
     Route: 048
     Dates: start: 20240816, end: 20241126
  2. NEORAL [Suspect]
     Active Substance: CYCLOSPORINE

REACTIONS (1)
  - Cerebellar syndrome [Recovering/Resolving]

NARRATIVE: CASE EVENT DATE: 20241122
